FAERS Safety Report 17418993 (Version 5)
Quarter: 2021Q3

REPORT INFORMATION
  Report Type: Report from Study
  Country: US (occurrence: US)
  Receive Date: 20200214
  Receipt Date: 20210916
  Transmission Date: 20211014
  Serious: Yes (Hospitalization)
  Sender: FDA-Public Use
  Company Number: NVSC2020US039544

PATIENT
  Age: 3 Year

DRUGS (23)
  1. INC424A [Suspect]
     Active Substance: RUXOLITINIB
     Dosage: 35 MG, BID
     Route: 048
     Dates: start: 20190821, end: 20190903
  2. INC424A [Suspect]
     Active Substance: RUXOLITINIB
     Dosage: 35 MG, BID
     Route: 048
     Dates: start: 20191220, end: 20191229
  3. METHOTREXATE. [Suspect]
     Active Substance: METHOTREXATE
     Dosage: 20 MG/M2/DOSE/WEEKLY DAYS 8,15, 22, 29, 36, 43, 50, 57, 64, 71, 78
     Route: 048
     Dates: start: 20200114, end: 20200205
  4. INC424A [Suspect]
     Active Substance: RUXOLITINIB
     Dosage: 35 MG, BID
     Route: 048
     Dates: start: 20200310, end: 20200323
  5. METHOTREXATE. [Suspect]
     Active Substance: METHOTREXATE
     Indication: ACUTE LYMPHOCYTIC LEUKAEMIA
     Dosage: 15 MG ONE TIME ON DAYS 1 AND 29 OF CYCLES 1 AND 2
     Route: 037
     Dates: start: 20200108, end: 20200205
  6. METHOTREXATE. [Suspect]
     Active Substance: METHOTREXATE
     Dosage: 15 MG ONE TIME ON DAYS 1 AND 29 OF CYCLES 1 AND 2
     Route: 037
     Dates: start: 20200211
  7. PREDNISONE. [Concomitant]
     Active Substance: PREDNISONE
     Indication: ACUTE LYMPHOCYTIC LEUKAEMIA
     Dosage: 20 MG/M2, BID DAYS 1?5, 29?33, 57?61
     Route: 048
     Dates: start: 20200108, end: 20200205
  8. PREDNISONE. [Concomitant]
     Active Substance: PREDNISONE
     Dosage: 20 MG/M2/DOSE BID DAYS 1?5, 29?33, 57?61
     Route: 048
     Dates: start: 20200220
  9. INC424A [Suspect]
     Active Substance: RUXOLITINIB
     Dosage: 35 MG, BID
     Route: 048
     Dates: start: 20190716, end: 20190729
  10. INC424A [Suspect]
     Active Substance: RUXOLITINIB
     Dosage: 35 MG, BID
     Route: 048
     Dates: start: 20191106, end: 20191117
  11. INC424A [Suspect]
     Active Substance: RUXOLITINIB
     Dosage: 35 MG, BID
     Route: 048
     Dates: start: 20200204, end: 20200220
  12. VINCRISTINE [Concomitant]
     Active Substance: VINCRISTINE
     Indication: ACUTE LYMPHOCYTIC LEUKAEMIA
     Dosage: 1.19 MG, QD ON DAYS 1, 29, AND 57
     Route: 042
     Dates: start: 20200108, end: 20200205
  13. INC424A [Suspect]
     Active Substance: RUXOLITINIB
     Dosage: 35 MG, BID
     Route: 048
     Dates: start: 20190614, end: 20190628
  14. METHOTREXATE. [Suspect]
     Active Substance: METHOTREXATE
     Dosage: 20 MG/M2/DOSE/WEEKLY DAYS 8,15, 22, 29, 36, 43, 50,
     Route: 048
     Dates: start: 20200220
  15. INC424A [Suspect]
     Active Substance: RUXOLITINIB
     Indication: ACUTE LYMPHOCYTIC LEUKAEMIA
     Dosage: 35 MG, BID
     Route: 048
     Dates: start: 20190416, end: 20190430
  16. INC424A [Suspect]
     Active Substance: RUXOLITINIB
     Dosage: 35 MG, BID
     Route: 048
     Dates: start: 20190514, end: 20190530
  17. INC424A [Suspect]
     Active Substance: RUXOLITINIB
     Dosage: 35 MG, BID
     Route: 048
     Dates: start: 20191127, end: 20191206
  18. INC424A [Suspect]
     Active Substance: RUXOLITINIB
     Dosage: 35 MG, BID
     Route: 048
     Dates: start: 20200407, end: 20200420
  19. INC424A [Suspect]
     Active Substance: RUXOLITINIB
     Dosage: 35 MG, BID
     Route: 048
     Dates: start: 20200108, end: 20200121
  20. MERCAPTOPURINE. [Suspect]
     Active Substance: MERCAPTOPURINE
     Indication: ACUTE LYMPHOCYTIC LEUKAEMIA
     Dosage: 60 MG DAYS 1?84
     Route: 048
     Dates: start: 20200108, end: 20200205
  21. INC424A [Suspect]
     Active Substance: RUXOLITINIB
     Dosage: 35 MG, BID
     Route: 048
     Dates: start: 20190924, end: 20191008
  22. VINCRISTINE [Concomitant]
     Active Substance: VINCRISTINE
     Dosage: 1.19 MG ONE TIME ON DAYS 1, 29, AND 57
     Route: 042
     Dates: start: 20200211
  23. ATIVAN [Concomitant]
     Active Substance: LORAZEPAM
     Indication: PRODUCT USED FOR UNKNOWN INDICATION
     Dosage: UNK
     Route: 065

REACTIONS (7)
  - Alanine aminotransferase increased [Recovered/Resolved]
  - Dehydration [Recovered/Resolved]
  - Somnolence [Recovered/Resolved]
  - Anaemia [Recovered/Resolved]
  - Pyrexia [Recovered/Resolved]
  - Aspartate aminotransferase increased [Recovered/Resolved]
  - Upper respiratory tract infection [Recovered/Resolved]

NARRATIVE: CASE EVENT DATE: 20200203
